FAERS Safety Report 5276806-6 (Version None)
Quarter: 2007Q1

REPORT INFORMATION
  Report Type: 
  Country: None (occurrence: None)
  Receive Date: 20070327
  Receipt Date: 20070316
  Transmission Date: 20070707
  Serious: Yes (Other)
  Sender: FDA-Public Use
  Company Number: US-JNJFOC-20070304405

PATIENT
  Age: 52 Year
  Sex: Male

DRUGS (6)
  1. DURAGESIC-100 [Suspect]
     Indication: PAIN
     Route: 062
  2. LORTAB [Concomitant]
     Indication: PAIN
     Route: 065
  3. PREVACID [Concomitant]
     Route: 065
  4. KLONOPIN [Concomitant]
     Indication: DEPRESSION
     Route: 065
  5. WELLBUTRIN [Concomitant]
     Indication: DEPRESSION
     Route: 065
  6. BUSPAR [Concomitant]
     Indication: ANXIETY
     Route: 065

REACTIONS (1)
  - ERECTILE DYSFUNCTION [None]
